FAERS Safety Report 24916092 (Version 1)
Quarter: 2025Q1

REPORT INFORMATION
  Report Type: Report from Study
  Country: US (occurrence: US)
  Receive Date: 20250203
  Receipt Date: 20250203
  Transmission Date: 20250409
  Serious: Yes (Hospitalization)
  Sender: ABBVIE
  Company Number: US-ABBVIE-6114859

PATIENT
  Sex: Male

DRUGS (2)
  1. VENCLEXTA [Suspect]
     Active Substance: VENETOCLAX
     Indication: Acute myeloid leukaemia
     Dosage: 100MG TABLET DAILY, 14 DAYS ON, 28 DAY CYCLE?FIRST ADMIN DATE WAS NOV 2024
     Route: 048
  2. VENCLEXTA [Suspect]
     Active Substance: VENETOCLAX
     Indication: Acute myeloid leukaemia
     Dosage: 100MG TABLET DAILY, 14 DAYS OFF, 28 DAY CYCLE?LAST ADMIN DATE WAS NOV 2024
     Route: 048
     Dates: start: 20241104

REACTIONS (1)
  - Fall [Unknown]
